FAERS Safety Report 8625343-7 (Version None)
Quarter: 2012Q3

REPORT INFORMATION
  Report Type: 
  Country: None (occurrence: None)
  Receive Date: 20120827
  Receipt Date: 20120822
  Transmission Date: 20120928
  Serious: Yes (Hospitalization, Other)
  Sender: FDA-Public Use
  Company Number: US-PFIZER INC-2012206848

PATIENT
  Age: 55 Year
  Sex: Female
  Weight: 63.492 kg

DRUGS (2)
  1. LYRICA [Suspect]
     Dosage: UNK
     Route: 048
  2. LYRICA [Suspect]
     Indication: NEURALGIA
     Dosage: 100MG AM + 300MG PM, 2X/DAY
     Route: 048
     Dates: start: 20050101

REACTIONS (4)
  - DRUG EFFECT DECREASED [None]
  - HEAD INJURY [None]
  - FALL [None]
  - EPILEPSY [None]
